FAERS Safety Report 6458836-1 (Version None)
Quarter: 2009Q4

REPORT INFORMATION
  Report Type: 
  Country: None (occurrence: None)
  Receive Date: 20091123
  Receipt Date: 20091105
  Transmission Date: 20100525
  Serious: Yes (Hospitalization)
  Sender: FDA-Public Use
  Company Number: 1000009967

PATIENT
  Age: 61 Year
  Sex: Female
  Weight: 68 kg

DRUGS (8)
  1. MEMANTINE HCL [Suspect]
     Indication: DEMENTIA ALZHEIMER'S TYPE
     Dosage: ORAL
     Route: 048
     Dates: start: 20090703, end: 20090923
  2. BISOPROLOL [Concomitant]
  3. CITALOPRAM HYDROBROMIDE [Concomitant]
  4. ARICEPT [Concomitant]
  5. PANTOPRAZOLE (20 MILLIGRAM) [Concomitant]
  6. ACICLOVIR (800 MILLIGRAM) [Concomitant]
  7. VOLTAREN [Concomitant]
  8. ANAESTHESULF [Concomitant]

REACTIONS (5)
  - DRUG INEFFECTIVE [None]
  - HYPERTENSIVE CRISIS [None]
  - NAUSEA [None]
  - SINUS BRADYCARDIA [None]
  - VOMITING [None]
